FAERS Safety Report 17717828 (Version 2)
Quarter: 2020Q2

REPORT INFORMATION
  Report Type: Report from Study
  Country: None (occurrence: IL)
  Receive Date: 20200428
  Receipt Date: 20200508
  Transmission Date: 20200714
  Serious: Yes (Hospitalization)
  Sender: FDA-Public Use
  Company Number: IL-ABBVIE-20K-082-3381139-00

PATIENT
  Sex: Male

DRUGS (2)
  1. DUODOPA [Suspect]
     Active Substance: CARBIDOPA\LEVODOPA
     Dosage: MORNING DOSE 11.5ML,?CONTINUOUS DOSE 2.9ML/HOUR,?EXTRA DOSE 2.5ML
     Route: 050
     Dates: start: 2020
  2. DUODOPA [Suspect]
     Active Substance: CARBIDOPA\LEVODOPA
     Indication: PARKINSON^S DISEASE
     Route: 050
     Dates: start: 20170827

REACTIONS (3)
  - Asthenia [Unknown]
  - Hallucination [Unknown]
  - Eyelid operation [Recovering/Resolving]

NARRATIVE: CASE EVENT DATE: 2020
